FAERS Safety Report 18444894 (Version 3)
Quarter: 2021Q1

REPORT INFORMATION
  Report Type: Spontaneous
  Country: HU (occurrence: HU)
  Receive Date: 20201030
  Receipt Date: 20210108
  Transmission Date: 20210419
  Serious: Yes (Other)
  Sender: FDA-Public Use
  Company Number: HU-RECORDATI RARE DISEASES-2093413

PATIENT
  Age: 43 Year
  Sex: Male

DRUGS (14)
  1. OCTREOTIDE, LONG ACTING [Suspect]
     Active Substance: OCTREOTIDE ACETATE
  2. PEGVISOMANT [Concomitant]
     Active Substance: PEGVISOMANT
  3. OCTREOTIDE, LONG ACTING [Suspect]
     Active Substance: OCTREOTIDE ACETATE
  4. OCTREOTIDE, LONG ACTING [Suspect]
     Active Substance: OCTREOTIDE ACETATE
  5. PEGVISOMANT [Concomitant]
     Active Substance: PEGVISOMANT
  6. PEGVISOMANT [Concomitant]
     Active Substance: PEGVISOMANT
  7. SIGNIFOR LAR [Suspect]
     Active Substance: PASIREOTIDE PAMOATE
     Indication: ACROMEGALY
  8. SIGNIFOR LAR [Suspect]
     Active Substance: PASIREOTIDE PAMOATE
  9. OCTREOTIDE, LONG ACTING [Suspect]
     Active Substance: OCTREOTIDE ACETATE
  10. OCTREOTIDE, LONG ACTING [Suspect]
     Active Substance: OCTREOTIDE ACETATE
  11. BROMOCRIPTINE [Concomitant]
     Active Substance: BROMOCRIPTINE
  12. PEGVISOMANT [Concomitant]
     Active Substance: PEGVISOMANT
  13. OCTREOTIDE, LONG ACTING [Suspect]
     Active Substance: OCTREOTIDE ACETATE
  14. OCTREOTIDE, LONG ACTING [Suspect]
     Active Substance: OCTREOTIDE ACETATE

REACTIONS (5)
  - Type 2 diabetes mellitus [Unknown]
  - Neoplasm progression [Unknown]
  - Drug ineffective [Unknown]
  - Pituitary tumour benign [Unknown]
  - Therapy non-responder [Unknown]
